FAERS Safety Report 11179291 (Version 3)
Quarter: 2015Q3

REPORT INFORMATION
  Report Type: Spontaneous
  Country: JP (occurrence: JP)
  Receive Date: 20150610
  Receipt Date: 20150717
  Transmission Date: 20151125
  Serious: Yes (Other)
  Sender: FDA-Public Use
  Company Number: JP-009507513-1506JPN003518

PATIENT
  Age: 71 Year
  Sex: Male
  Weight: 53 kg

DRUGS (9)
  1. ULTIVA [Concomitant]
     Active Substance: REMIFENTANIL HYDROCHLORIDE
     Indication: GENERAL ANAESTHESIA
     Dosage: 0.3 MCG/KG/MIN
     Route: 042
     Dates: start: 20150601, end: 20150601
  2. ALBUMIN HUMAN [Concomitant]
     Active Substance: ALBUMIN (HUMAN)
     Dosage: UNK
     Route: 051
     Dates: start: 20150601, end: 20150601
  3. FENTANYL. [Concomitant]
     Active Substance: FENTANYL
     Indication: GENERAL ANAESTHESIA
     Dosage: 1 ML, ONCE
     Route: 042
     Dates: start: 20150601, end: 20150601
  4. OMEGACIN (BIAPENEM) [Concomitant]
     Active Substance: BIAPENEM
     Dosage: 0.3 G, TID
     Route: 042
     Dates: start: 20150601, end: 20150601
  5. ESLAX [Suspect]
     Active Substance: ROCURONIUM BROMIDE
     Indication: NEUROMUSCULAR BLOCKING THERAPY
     Dosage: 10 MG ADDITIONAL ADMINISTRATION AFTER 50 MG, ONCE
     Route: 042
     Dates: start: 20150601, end: 20150601
  6. LASIX [Concomitant]
     Active Substance: FUROSEMIDE
     Dosage: UNK
     Route: 065
     Dates: start: 20150601, end: 20150601
  7. ESLAX [Suspect]
     Active Substance: ROCURONIUM BROMIDE
     Dosage: 10 MG ADDITIONAL ADMINISTRATION AFTER 50 MG, ONCE
     Route: 042
     Dates: start: 20150601, end: 20150601
  8. PROPOFOL. [Suspect]
     Active Substance: PROPOFOL
     Indication: GENERAL ANAESTHESIA
     Dosage: 60 MG, ONCE
     Route: 042
     Dates: start: 20150601, end: 20150601
  9. SAXIZON [Concomitant]
     Active Substance: HYDROCORTISONE SODIUM SUCCINATE
     Route: 042

REACTIONS (3)
  - Blood pressure systolic decreased [Recovered/Resolved]
  - Erythema [Recovered/Resolved]
  - Urticaria [Recovered/Resolved]

NARRATIVE: CASE EVENT DATE: 20150601
